FAERS Safety Report 8988834 (Version 1)
Quarter: 2012Q4

REPORT INFORMATION
  Report Type: Spontaneous
  Country: US (occurrence: None)
  Receive Date: 20121206
  Receipt Date: 20121206
  Transmission Date: 20130627
  Serious: Yes (Other)
  Sender: FDA-Public Use
  Company Number: 2012GMK004493

PATIENT
  Age: 23 Year
  Sex: Female

DRUGS (1)
  1. OXCARBAZEPINE [Suspect]
     Indication: SEIZURE
     Route: 048

REACTIONS (7)
  - Convulsion [None]
  - Blindness [None]
  - Feeling abnormal [None]
  - Disturbance in attention [None]
  - Musculoskeletal stiffness [None]
  - Disorientation [None]
  - Drug ineffective [None]
